FAERS Safety Report 15595752 (Version 1)
Quarter: 2018Q4

REPORT INFORMATION
  Report Type: Spontaneous
  Country: US (occurrence: US)
  Receive Date: 20181107
  Receipt Date: 20181107
  Transmission Date: 20190205
  Serious: Yes (Other)
  Sender: FDA-Public Use
  Company Number: US-NAPPMUNDI-USA-2018-0145101

PATIENT
  Age: 64 Year
  Sex: Female

DRUGS (4)
  1. BUTRANS [Suspect]
     Active Substance: BUPRENORPHINE
     Indication: RHEUMATOID ARTHRITIS
  2. BUTRANS [Suspect]
     Active Substance: BUPRENORPHINE
     Indication: LUNG NEOPLASM MALIGNANT
     Dosage: 5 MCG/HR, WEEKLY
     Route: 062
     Dates: start: 201802
  3. BUTRANS [Suspect]
     Active Substance: BUPRENORPHINE
     Indication: PAIN
  4. BUTRANS [Suspect]
     Active Substance: BUPRENORPHINE
     Indication: BONE CANCER
     Dosage: 5 MCG/HR, WEEKLY
     Route: 062
     Dates: start: 2010, end: 201801

REACTIONS (7)
  - Extra dose administered [Not Recovered/Not Resolved]
  - Product quality issue [Unknown]
  - Drug withdrawal syndrome [Not Recovered/Not Resolved]
  - Gastrointestinal disorder [Not Recovered/Not Resolved]
  - Insomnia [Not Recovered/Not Resolved]
  - Restlessness [Not Recovered/Not Resolved]
  - Drug ineffective [Not Recovered/Not Resolved]

NARRATIVE: CASE EVENT DATE: 20181029
